FAERS Safety Report 10911419 (Version 8)
Quarter: 2019Q1

REPORT INFORMATION
  Report Type: Report from Study
  Country: DE (occurrence: DE)
  Receive Date: 20150313
  Receipt Date: 20190123
  Transmission Date: 20190417
  Serious: Yes (Death, Hospitalization)
  Sender: FDA-Public Use
  Company Number: DE-ROCHE-1500938

PATIENT
  Age: 75 Year
  Sex: Female
  Weight: 63 kg

DRUGS (22)
  1. CAPECITABINE. [Suspect]
     Active Substance: CAPECITABINE
     Indication: COLORECTAL CANCER METASTATIC
     Dosage: ON DAY 1-14 OF EVERY CYCLE WITH 7 DAY PAUSE
     Route: 048
     Dates: start: 20140909, end: 20141216
  2. DEXAMETHASON [Concomitant]
     Active Substance: DEXAMETHASONE
     Route: 065
  3. BEVACIZUMAB. [Suspect]
     Active Substance: BEVACIZUMAB
     Dosage: MOST RECENT DOSE PRIOR TO EVENT: 03/FEB/2015.
     Route: 042
     Dates: start: 20150203, end: 20150407
  4. OXYBUTYNIN. [Concomitant]
     Active Substance: OXYBUTYNIN CHLORIDE
     Route: 065
  5. BEVACIZUMAB. [Suspect]
     Active Substance: BEVACIZUMAB
     Route: 042
     Dates: start: 20141111
  6. ONDANSETRON [Concomitant]
     Active Substance: ONDANSETRON
     Route: 065
  7. CAPECITABINE. [Suspect]
     Active Substance: CAPECITABINE
     Dosage: ON DAY 1-14 OF EVERY CYCLE WITH 7 DAY PAUSE
     Route: 048
     Dates: start: 20150203, end: 20150421
  8. IRINOTECAN [Suspect]
     Active Substance: IRINOTECAN
     Indication: COLORECTAL CANCER METASTATIC
     Route: 042
     Dates: start: 20150203, end: 20150407
  9. RAMIPRIL. [Concomitant]
     Active Substance: RAMIPRIL
     Indication: HYPERTENSION
     Route: 048
  10. IBEROGAST [Concomitant]
     Active Substance: HERBALS
     Dosage: WITH MEALS 30GTT
     Route: 048
  11. APLONA [Concomitant]
     Indication: DIARRHOEA
     Route: 048
  12. BEVACIZUMAB. [Suspect]
     Active Substance: BEVACIZUMAB
     Indication: COLORECTAL CANCER METASTATIC
     Dosage: MOST RECENT DOSE PRIOR TO EVENT: 11/NOV/2014.
     Route: 042
     Dates: start: 20140909, end: 20150407
  13. BEVACIZUMAB. [Suspect]
     Active Substance: BEVACIZUMAB
     Route: 042
     Dates: start: 20150317
  14. CAPECITABINE. [Suspect]
     Active Substance: CAPECITABINE
     Dosage: ON DAY 1-14 OF EVERY CYCLE WITH 7 DAY PAUSE
     Route: 048
     Dates: start: 20141223, end: 20150127
  15. MACROGOL [Concomitant]
     Active Substance: POLYETHYLENE GLYCOLS
     Indication: CONSTIPATION
     Route: 048
  16. CAPECITABINE. [Suspect]
     Active Substance: CAPECITABINE
     Dosage: DOSE (VALUE): 1650-3500
     Route: 048
     Dates: start: 20140909, end: 20150421
  17. L-THYROXIN [Concomitant]
     Active Substance: LEVOTHYROXINE SODIUM
     Route: 065
  18. AMLODIPIN [Concomitant]
     Active Substance: AMLODIPINE BESYLATE
     Route: 065
  19. METOCLOPRAMID [Concomitant]
     Active Substance: METOCLOPRAMIDE
     Route: 065
  20. SIMVASTATIN. [Concomitant]
     Active Substance: SIMVASTATIN
     Route: 065
  21. PANTOPRAZOL [Concomitant]
     Active Substance: PANTOPRAZOLE SODIUM
     Route: 065
  22. TARGIN [Concomitant]
     Active Substance: NALOXONE HYDROCHLORIDE\OXYCODONE HYDROCHLORIDE
     Dosage: 20/10 MG
     Route: 065

REACTIONS (13)
  - General physical health deterioration [Fatal]
  - Abdominal pain [Recovered/Resolved]
  - Gastritis [Recovered/Resolved]
  - Palmar-plantar erythrodysaesthesia syndrome [Recovered/Resolved]
  - Nausea [Recovered/Resolved]
  - Asthenia [Recovered/Resolved]
  - Diarrhoea [Recovered/Resolved]
  - Vertigo [Recovered/Resolved]
  - Subileus [Recovered/Resolved]
  - Pain [Recovered/Resolved]
  - Nausea [Recovered/Resolved]
  - Asthenia [Unknown]
  - Pulmonary embolism [Not Recovered/Not Resolved]

NARRATIVE: CASE EVENT DATE: 20141124
